FAERS Safety Report 8826796 (Version 7)
Quarter: 2014Q2

REPORT INFORMATION
  Report Type: Spontaneous
  Country: CA (occurrence: CA)
  Receive Date: 20121005
  Receipt Date: 20140512
  Transmission Date: 20141212
  Serious: Yes (Hospitalization)
  Sender: FDA-Public Use
  Company Number: CA-GLAXOSMITHKLINE-A0990660A

PATIENT
  Age: 47 Year
  Sex: Female
  Weight: 79 kg

DRUGS (3)
  1. BENLYSTA [Suspect]
     Indication: SYSTEMIC LUPUS ERYTHEMATOSUS
     Dosage: 800MG SEE DOSAGE TEXT
     Route: 042
     Dates: start: 20120810
  2. BENADRYL [Concomitant]
     Dosage: 50MG SEE DOSAGE TEXT
  3. TYLENOL [Concomitant]
     Dosage: 1000MG SEE DOSAGE TEXT

REACTIONS (24)
  - Nephrolithiasis [Recovered/Resolved]
  - Dehydration [Not Recovered/Not Resolved]
  - Constipation [Recovering/Resolving]
  - Sleep terror [Recovering/Resolving]
  - Nightmare [Unknown]
  - Colonoscopy [Unknown]
  - Gastrointestinal hypomotility [Unknown]
  - Fall [Unknown]
  - Nerve injury [Unknown]
  - Nerve compression [Unknown]
  - Hypoaesthesia [Unknown]
  - Pain [Unknown]
  - Limb operation [Unknown]
  - Skin ulcer [Unknown]
  - Visual impairment [Unknown]
  - Impaired healing [Unknown]
  - Malaise [Not Recovered/Not Resolved]
  - Lymph gland infection [Unknown]
  - Infection [Unknown]
  - Movement disorder [Unknown]
  - Hair texture abnormal [Unknown]
  - Tooth extraction [Unknown]
  - Vomiting [Unknown]
  - Device related infection [Recovered/Resolved]
